FAERS Safety Report 15048944 (Version 2)
Quarter: 2018Q2

REPORT INFORMATION
  Report Type: Spontaneous
  Country: US (occurrence: US)
  Receive Date: 20180622
  Receipt Date: 20180630
  Transmission Date: 20180711
  Serious: Yes (Death)
  Sender: FDA-Public Use
  Company Number: US-ROCHE-2144217

PATIENT
  Age: 84 Year
  Sex: Male

DRUGS (1)
  1. ESBRIET [Suspect]
     Active Substance: PIRFENIDONE
     Indication: IDIOPATHIC PULMONARY FIBROSIS
     Dosage: ONGOING: UNKNOWN
     Route: 048
     Dates: start: 20180506

REACTIONS (2)
  - Atrial fibrillation [Fatal]
  - Failure to thrive [Fatal]

NARRATIVE: CASE EVENT DATE: 20180614
